FAERS Safety Report 24693646 (Version 2)
Quarter: 2025Q1

REPORT INFORMATION
  Report Type: Spontaneous
  Country: PT (occurrence: PT)
  Receive Date: 20241204
  Receipt Date: 20250124
  Transmission Date: 20250409
  Serious: Yes (Other)
  Sender: NOVO NORDISK
  Company Number: PT-NOVOPROD-1325482

PATIENT
  Age: 31 Year
  Sex: Female
  Weight: 80 kg

DRUGS (4)
  1. SAXENDA [Suspect]
     Active Substance: LIRAGLUTIDE
     Indication: Obesity
     Dosage: 3 MG, QD
     Route: 058
     Dates: start: 202406, end: 20240809
  2. SAXENDA [Suspect]
     Active Substance: LIRAGLUTIDE
     Indication: Hyperhidrosis
  3. SAXENDA [Suspect]
     Active Substance: LIRAGLUTIDE
     Indication: Palpitations
  4. PROPRANOLOL HYDROCHLORIDE [Concomitant]
     Active Substance: PROPRANOLOL HYDROCHLORIDE
     Indication: Sinus tachycardia
     Dates: start: 2013

REACTIONS (5)
  - Palpitations [Recovered/Resolved]
  - Hyperhidrosis [Recovered/Resolved]
  - Sinus tachycardia [Recovered/Resolved]
  - Supraventricular extrasystoles [Unknown]
  - Vomiting [Recovered/Resolved]

NARRATIVE: CASE EVENT DATE: 20240809
